FAERS Safety Report 10348265 (Version 2)
Quarter: 2014Q3

REPORT INFORMATION
  Report Type: Spontaneous
  Country: DK (occurrence: IT)
  Receive Date: 20140729
  Receipt Date: 20140729
  Transmission Date: 20150326
  Serious: Yes (Other)
  Sender: FDA-Public Use
  Company Number: IT-FRI-1000022085

PATIENT
  Sex: Female
  Weight: 58 kg

DRUGS (3)
  1. XANAX [Concomitant]
     Active Substance: ALPRAZOLAM
     Indication: ANXIETY
     Dosage: 5 MG
     Route: 048
     Dates: start: 20110317, end: 20110818
  2. PROGESTERONE. [Concomitant]
     Active Substance: PROGESTERONE
     Dates: end: 20110228
  3. ESCITALOPRAM [Suspect]
     Active Substance: ESCITALOPRAM OXALATE
     Indication: DEPRESSIVE SYMPTOM
     Dosage: 10 MG
     Route: 048
     Dates: start: 20110218

REACTIONS (7)
  - Adnexal torsion [Unknown]
  - Depression [Unknown]
  - Pregnancy [Recovered/Resolved]
  - Hypothyroidism [Unknown]
  - Infection [Unknown]
  - Gestational diabetes [Unknown]
  - Pelvic pain [Unknown]
